FAERS Safety Report 10990563 (Version 1)
Quarter: 2015Q2

REPORT INFORMATION
  Report Type: Spontaneous
  Country: CO (occurrence: CO)
  Receive Date: 20150406
  Receipt Date: 20150406
  Transmission Date: 20150821
  Serious: Yes (Hospitalization, Other)
  Sender: FDA-Public Use
  Company Number: CO-BAUSCH-BL-2015-010496

PATIENT
  Age: 68 Year
  Sex: Male

DRUGS (6)
  1. ACYCLOVIR. [Suspect]
     Active Substance: ACYCLOVIR
     Route: 042
  2. ACYCLOVIR. [Suspect]
     Active Substance: ACYCLOVIR
     Indication: HERPES ZOSTER
     Route: 048
  3. ACYCLOVIR. [Suspect]
     Active Substance: ACYCLOVIR
     Route: 061
  4. AMLODIPINE [Concomitant]
     Active Substance: AMLODIPINE BESYLATE
     Indication: HYPERTENSION
  5. LOSARTAN [Concomitant]
     Active Substance: LOSARTAN
     Indication: HYPERTENSION
  6. ACYCLOVIR. [Suspect]
     Active Substance: ACYCLOVIR
     Route: 047

REACTIONS (3)
  - Drug ineffective [Unknown]
  - Acute kidney injury [Recovered/Resolved]
  - Vertigo [Recovered/Resolved]
